FAERS Safety Report 9695005 (Version 1)
Quarter: 2013Q4

REPORT INFORMATION
  Report Type: Spontaneous
  Country: US (occurrence: US)
  Receive Date: 20131119
  Receipt Date: 20131119
  Transmission Date: 20140711
  Serious: Yes (Other)
  Sender: FDA-Public Use
  Company Number: US-ASTRAZENECA-2013SE82963

PATIENT
  Age: 57 Year
  Sex: Female
  Weight: 90.3 kg

DRUGS (6)
  1. PULMICORT FLEXHALER [Suspect]
     Indication: ASTHMA
     Dosage: 180 MCG, 2 PUFFS BID
     Route: 055
  2. SYMBICORT PMDI [Suspect]
     Indication: CHRONIC OBSTRUCTIVE PULMONARY DISEASE
     Dosage: 2 PUFFS BID
     Route: 055
  3. PREDNISONE [Suspect]
     Indication: DYSPNOEA
     Route: 065
  4. FENTANYL [Concomitant]
     Indication: PAIN
  5. LYRICA [Concomitant]
     Indication: PAIN
  6. NEBULIZER TREATMENTS [Concomitant]
     Indication: DYSPNOEA

REACTIONS (1)
  - Spinal disorder [Unknown]
